FAERS Safety Report 12078451 (Version 1)
Quarter: 2016Q1

REPORT INFORMATION
  Report Type: Other
  Country: US (occurrence: US)
  Receive Date: 20160216
  Receipt Date: 20160216
  Transmission Date: 20160526
  Serious: Yes (Death)
  Sender: FDA-Public Use
  Company Number: US-ACIC FINE CHEMICALS INC-1047819

PATIENT
  Age: 51 Year
  Sex: Female

DRUGS (1)
  1. TRANEXAMIC ACID. [Suspect]
     Active Substance: TRANEXAMIC ACID
     Indication: COAGULOPATHY
     Route: 065

REACTIONS (3)
  - Thrombosis [Fatal]
  - Pulseless electrical activity [Fatal]
  - Coagulopathy [Fatal]
